APPROVED DRUG PRODUCT: CHLORZOXAZONE
Active Ingredient: CHLORZOXAZONE
Strength: 750MG
Dosage Form/Route: TABLET;ORAL
Application: A211849 | Product #003 | TE Code: AB
Applicant: DR REDDYS LABORATORIES SA
Approved: Jul 21, 2020 | RLD: No | RS: No | Type: RX